FAERS Safety Report 10038859 (Version 2)
Quarter: 2014Q2

REPORT INFORMATION
  Report Type: Spontaneous
  Country: US (occurrence: US)
  Receive Date: 20140326
  Receipt Date: 20140411
  Transmission Date: 20141212
  Serious: Yes (Hospitalization)
  Sender: FDA-Public Use
  Company Number: US-GLAXOSMITHKLINE-A1066764A

PATIENT
  Age: 69 Year
  Sex: Female

DRUGS (13)
  1. ADVAIR [Suspect]
     Indication: CHRONIC OBSTRUCTIVE PULMONARY DISEASE
     Dosage: 1PUFF PER DAY
     Route: 055
  2. PROAIR HFA [Concomitant]
  3. NEBULIZER [Concomitant]
  4. OXYGEN [Concomitant]
  5. SPIRIVA [Concomitant]
  6. CYMBALTA [Concomitant]
  7. ATORVASTATIN [Concomitant]
  8. PROZAC [Concomitant]
  9. NORVASC [Concomitant]
  10. PROTONIX [Concomitant]
  11. LORTAB [Concomitant]
  12. XANAX [Concomitant]
  13. NITROGLYCERIN [Concomitant]

REACTIONS (9)
  - Cerebrovascular accident [Unknown]
  - Amnesia [Not Recovered/Not Resolved]
  - Bronchitis [Unknown]
  - Pneumonia [Unknown]
  - Central nervous system lesion [Unknown]
  - Disability [Unknown]
  - Mental disorder [Unknown]
  - Insomnia [Unknown]
  - Drug administration error [Unknown]
